FAERS Safety Report 6266769-9 (Version None)
Quarter: 2009Q3

REPORT INFORMATION
  Report Type: 
  Country: None (occurrence: None)
  Receive Date: 20090714
  Receipt Date: 20070413
  Transmission Date: 20100115
  Serious: Yes (Hospitalization, Other)
  Sender: FDA-Public Use
  Company Number: US-ASTRAZENECA-2006UW11028

PATIENT
  Age: 50 Year
  Sex: Male
  Weight: 77.5 kg

DRUGS (10)
  1. SEROQUEL [Suspect]
     Indication: SCHIZOPHRENIA
     Dosage: 40 MG TO 100 MG
     Route: 048
     Dates: start: 20020101, end: 20060101
  2. SEROQUEL [Suspect]
     Route: 048
     Dates: start: 20040306
  3. ZYPREXA [Suspect]
  4. RISPERDAL [Suspect]
  5. STELAZINE [Suspect]
  6. ACTOS [Concomitant]
     Route: 065
  7. LUVOX [Concomitant]
     Route: 065
  8. LANTUS [Concomitant]
     Dosage: 10 UNITS- 12 UNITS
     Route: 065
  9. GLUCOTROL [Concomitant]
     Route: 065
  10. TRICOR [Concomitant]
     Route: 065

REACTIONS (4)
  - CARPAL TUNNEL SYNDROME [None]
  - DIABETES MELLITUS [None]
  - POLYNEUROPATHY [None]
  - TENDONITIS [None]
